FAERS Safety Report 16014257 (Version 11)
Quarter: 2022Q2

REPORT INFORMATION
  Report Type: Other
  Country: GB (occurrence: None)
  Receive Date: 20190227
  Receipt Date: 20220518
  Transmission Date: 20220721
  Serious: Yes (Other)
  Sender: FDA-Public Use
  Company Number: GB-ROCHE-2232380

PATIENT
  Sex: Female

DRUGS (4)
  1. TOCILIZUMAB [Suspect]
     Active Substance: TOCILIZUMAB
     Indication: Rheumatoid arthritis
     Route: 058
     Dates: start: 20181003
  2. TOCILIZUMAB [Suspect]
     Active Substance: TOCILIZUMAB
     Route: 058
     Dates: start: 20181019
  3. TOCILIZUMAB [Suspect]
     Active Substance: TOCILIZUMAB
     Indication: Rheumatoid arthritis
     Route: 042
  4. METFORMIN [Concomitant]
     Active Substance: METFORMIN HYDROCHLORIDE

REACTIONS (12)
  - Rales [Unknown]
  - Lower respiratory tract infection [Recovered/Resolved]
  - Asthenia [Unknown]
  - Infection susceptibility increased [Recovered/Resolved]
  - Bronchitis [Unknown]
  - Crepitations [Unknown]
  - Urinary tract infection [Unknown]
  - Illness [Unknown]
  - Condition aggravated [Unknown]
  - Pneumonia [Unknown]
  - Red blood cell sedimentation rate decreased [Unknown]
  - Malaise [Unknown]

NARRATIVE: CASE EVENT DATE: 20181220
